FAERS Safety Report 6242459-3 (Version None)
Quarter: 2009Q2

REPORT INFORMATION
  Report Type: 
  Country: None (occurrence: None)
  Receive Date: 20090624
  Receipt Date: 20090622
  Transmission Date: 20091009
  Serious: Yes (Other)
  Sender: FDA-Public Use
  Company Number: IT-JNJFOC-20090607332

PATIENT
  Sex: Male

DRUGS (3)
  1. LEVOXACIN [Suspect]
     Indication: PYREXIA
     Route: 048
  2. PARACETAMOL [Suspect]
     Route: 048
  3. PARACETAMOL [Suspect]
     Indication: PYREXIA
     Route: 048

REACTIONS (2)
  - BRONCHOSPASM [None]
  - DERMATITIS [None]
